FAERS Safety Report 19422278 (Version 1)
Quarter: 2021Q2

REPORT INFORMATION
  Report Type: Spontaneous
  Country: US (occurrence: US)
  Receive Date: 20210616
  Receipt Date: 20210616
  Transmission Date: 20210717
  Serious: Yes (Hospitalization)
  Sender: FDA-Public Use
  Company Number: None

PATIENT
  Sex: Male

DRUGS (2)
  1. TOBRAMYCIN (56AMPS/28DAY) 300MG/5ML  LUPIN PHARMACEUTICALS [Suspect]
     Active Substance: TOBRAMYCIN
     Indication: CYSTIC FIBROSIS
     Dosage: ?          OTHER DOSE:1 AMPULE;?
     Route: 055
     Dates: start: 20210517
  2. PULMOZYME [Suspect]
     Active Substance: DORNASE ALFA
     Indication: CYSTIC FIBROSIS
     Dosage: ?          OTHER DOSE:1 VIAL;?
     Route: 055
     Dates: start: 20210517

REACTIONS (2)
  - Condition aggravated [None]
  - Cystic fibrosis [None]
